FAERS Safety Report 24247299 (Version 2)
Quarter: 2024Q3

REPORT INFORMATION
  Report Type: Other
  Country: LB (occurrence: LB)
  Receive Date: 20240826
  Receipt Date: 20240924
  Transmission Date: 20241017
  Serious: Yes (Other)
  Sender: APPCO PHARMA
  Company Number: LB-Appco Pharma LLC-2160845

PATIENT
  Age: 57 Year
  Sex: Female

DRUGS (8)
  1. HYDROXYCHLOROQUINE SULFATE [Suspect]
     Active Substance: HYDROXYCHLOROQUINE SULFATE
     Indication: Dermatomyositis
  2. AMLODIPINE [Concomitant]
     Active Substance: AMLODIPINE BESYLATE
  3. PREDNISONE [Concomitant]
     Active Substance: PREDNISONE
  4. OMEPRAZOLE [Concomitant]
     Active Substance: OMEPRAZOLE
  5. METHIMAZOLE [Concomitant]
     Active Substance: METHIMAZOLE
  6. ROSUVASTATIN [Concomitant]
     Active Substance: ROSUVASTATIN\ROSUVASTATIN CALCIUM
  7. METFORMIN [Concomitant]
     Active Substance: METFORMIN HYDROCHLORIDE
  8. PROPRANOLOL [Concomitant]
     Active Substance: PROPRANOLOL HYDROCHLORIDE

REACTIONS (2)
  - Dermatomyositis [Recovering/Resolving]
  - Condition aggravated [Recovering/Resolving]
